FAERS Safety Report 6316604-5 (Version None)
Quarter: 2009Q3

REPORT INFORMATION
  Report Type: 
  Country: None (occurrence: None)
  Receive Date: 20090820
  Receipt Date: 20090716
  Transmission Date: 20100115
  Serious: Yes (Other)
  Sender: FDA-Public Use
  Company Number: PHHY2009FI29491

PATIENT
  Age: 41 Year
  Sex: Female

DRUGS (15)
  1. LEPONEX [Suspect]
     Indication: SCHIZOPHRENIA, PARANOID TYPE
     Dosage: 100 MG+100 MG+300 MG
  2. LYRICA [Interacting]
     Indication: ANXIETY
     Dosage: 1 DF, BID
     Dates: start: 20080930
  3. LYRICA [Interacting]
     Dosage: 2 DF, BID
     Dates: start: 20081125
  4. LYRICA [Interacting]
     Dosage: 1 DF, BID
     Dates: start: 20081216
  5. LYRICA [Interacting]
     Dosage: 1 DF, QD
     Dates: start: 20090323, end: 20090629
  6. KLORPROMAN [Concomitant]
     Dosage: 1 TABLET 2-3 TIMES
     Dates: start: 20080929, end: 20081216
  7. KALCIPOS-D [Concomitant]
     Dosage: UNK
     Dates: start: 20080929
  8. NULYTELY [Concomitant]
     Dosage: 1 DF, TID
     Dates: start: 20080929
  9. NEXIUM [Concomitant]
     Dosage: 1 DF, QD
     Dates: start: 20080929
  10. EFFEXOR [Concomitant]
     Dosage: 1 DF, QD
     Dates: start: 20080929
  11. RISPERDAL [Concomitant]
     Dosage: 3 MG, TID
     Dates: start: 20080929
  12. RISPERDAL [Concomitant]
     Dosage: 3 MG (0.5+0.5+1 TABLET/DAY)
     Dates: start: 20090209
  13. RISPERDAL [Concomitant]
     Dosage: 3 MG (0.5+1 TABLET/DAY)
     Dates: start: 20090420
  14. RISPERDAL [Concomitant]
     Dosage: 1.5 MG (1+1 TABLET/DAY)
     Dates: start: 20090504
  15. TEMESTA [Concomitant]
     Dosage: 1DF 2-3 TIMES/DAY, PRN

REACTIONS (9)
  - ANTIPSYCHOTIC DRUG LEVEL INCREASED [None]
  - ANXIETY [None]
  - DROOLING [None]
  - DRUG INTERACTION [None]
  - DYSPHAGIA [None]
  - EXTRAPYRAMIDAL DISORDER [None]
  - MACULAR DEGENERATION [None]
  - PANIC DISORDER [None]
  - POSTURE ABNORMAL [None]
